FAERS Safety Report 8934637 (Version 2)
Quarter: 2013Q1

REPORT INFORMATION
  Report Type: Report from Study
  Country: US (occurrence: US)
  Receive Date: 20121129
  Receipt Date: 20130125
  Transmission Date: 20140127
  Serious: Yes (Death, Hospitalization, Other)
  Sender: FDA-Public Use
  Company Number: US-GENZYME-MOZO-1000783

PATIENT
  Age: 74 Year
  Sex: Male
  Weight: 71.1 kg

DRUGS (22)
  1. MOZOBIL [Suspect]
     Indication: HAEMATOPOIETIC STEM CELL MOBILISATION
     Dosage: 41000 MCG, UNK
     Route: 058
     Dates: start: 20121015, end: 20121221
  2. MOZOBIL [Suspect]
     Indication: MYELODYSPLASTIC SYNDROME
  3. G-CSF [Suspect]
     Indication: MYELODYSPLASTIC SYNDROME
     Dosage: 362 MCG, UNK
     Route: 058
     Dates: start: 20121015, end: 20121221
  4. VIDAZA [Suspect]
     Indication: MYELODYSPLASTIC SYNDROME
     Dosage: 145 MG, UNK
     Route: 058
     Dates: start: 20121015, end: 20121221
  5. ACYCLOVIR [Concomitant]
     Indication: VIRAL INFECTION
     Dosage: 400 MG, TID
     Route: 048
     Dates: start: 20121023
  6. CELEXA [Concomitant]
     Indication: DEPRESSION
     Dosage: 40 MG, QD
     Route: 048
  7. COMBIVENT [Concomitant]
     Indication: CHRONIC OBSTRUCTIVE PULMONARY DISEASE
     Dosage: UNK (2 PUFFS THREE TO FOUR TIMES DAILY)
     Route: 065
  8. GABAPENTIN [Concomitant]
     Indication: DIABETES MELLITUS
     Dosage: 1200 MG, BID
     Route: 065
  9. GLIPIZIDE [Concomitant]
     Indication: DIABETES MELLITUS
     Dosage: 10 MG, BID (BEFORE MEALS)
  10. GUALFENESIN CR [Concomitant]
     Indication: COUGH
     Dosage: 400 MG, BID
     Route: 065
  11. LEVOTHYROXINE SODIUM [Concomitant]
     Indication: HYPERTHYROIDISM
     Dosage: 112 MCG, UNK (HALF HR BEFORE OTHER MEDICATIONS)
     Route: 048
  12. LISINOPRIL [Concomitant]
     Indication: HYPERTENSION
     Dosage: 5 MG, QD
     Route: 048
  13. MEGACE ES [Concomitant]
     Indication: PRODUCT USED FOR UNKNOWN INDICATION
     Dosage: UNK (1 TEASPOONFUL)
     Route: 048
     Dates: start: 20121023
  14. METFORMIN HCL [Concomitant]
     Indication: DIABETES MELLITUS
     Dosage: 500 MG, BID
     Route: 048
  15. METOPROLOL TARTRATE [Concomitant]
     Indication: HYPERTENSION
     Dosage: 50 MG, BID
     Route: 048
  16. OMEPRAZOLE [Concomitant]
     Indication: PRODUCT USED FOR UNKNOWN INDICATION
     Dosage: 20 MG, QD
     Route: 048
  17. ONDANSETRON HYDROCHLORIDE [Concomitant]
     Indication: NAUSEA
     Dosage: 32 MG, QD
     Route: 048
     Dates: start: 20121004
  18. OXYCODONE-ACETAMINOPHEN [Concomitant]
     Indication: PAIN
     Dosage: 1 DF, UNK (EVERTY 4-6 HRS AS NEEDED)
     Route: 048
  19. OXYCODONE-ACETAMINOPHEN [Concomitant]
     Indication: THERMAL BURN
  20. PRAVASTATIN SODIUM [Concomitant]
     Indication: PRODUCT USED FOR UNKNOWN INDICATION
     Dosage: 20 MG, UNK
     Route: 048
  21. SYMBICORT [Concomitant]
     Indication: CHRONIC OBSTRUCTIVE PULMONARY DISEASE
     Dosage: UNK
     Route: 065
  22. THEOPHYLLIN [Concomitant]
     Indication: CHRONIC OBSTRUCTIVE PULMONARY DISEASE
     Dosage: 400 MG, QD
     Route: 048

REACTIONS (7)
  - Respiratory failure [Fatal]
  - Atelectasis [Unknown]
  - Electrocardiogram ST segment depression [Unknown]
  - White blood cell count decreased [Unknown]
  - Chest pain [Unknown]
  - Pneumonia [Fatal]
  - Viral infection [Unknown]
